FAERS Safety Report 11791226 (Version 4)
Quarter: 2016Q1

REPORT INFORMATION
  Report Type: Report from Study
  Country: AU (occurrence: AU)
  Receive Date: 20151201
  Receipt Date: 20160114
  Transmission Date: 20160525
  Serious: Yes (Other)
  Sender: FDA-Public Use
  Company Number: AU-JNJFOC-20151126816

PATIENT
  Age: 25 Year
  Sex: Female
  Weight: 65 kg

DRUGS (9)
  1. REMICADE [Suspect]
     Active Substance: INFLIXIMAB
     Indication: PSORIATIC ARTHROPATHY
     Dosage: WEEK 0
     Route: 042
     Dates: start: 20151126
  2. REMICADE [Suspect]
     Active Substance: INFLIXIMAB
     Indication: ANKYLOSING SPONDYLITIS
     Dosage: WEEK 0
     Route: 042
     Dates: start: 20151126
  3. REMICADE [Suspect]
     Active Substance: INFLIXIMAB
     Indication: ANKYLOSING SPONDYLITIS
     Dosage: WEEK6
     Route: 042
     Dates: start: 20160107
  4. REMICADE [Suspect]
     Active Substance: INFLIXIMAB
     Indication: ANKYLOSING SPONDYLITIS
     Dosage: WEEK2
     Route: 042
     Dates: start: 20151209
  5. PARACETAMOL [Concomitant]
     Active Substance: ACETAMINOPHEN
     Indication: PREMEDICATION
     Route: 048
     Dates: start: 20151127
  6. REMICADE [Suspect]
     Active Substance: INFLIXIMAB
     Indication: PSORIATIC ARTHROPATHY
     Dosage: WEEK6
     Route: 042
     Dates: start: 20160107
  7. REMICADE [Suspect]
     Active Substance: INFLIXIMAB
     Indication: PSORIATIC ARTHROPATHY
     Dosage: WEEK2
     Route: 042
     Dates: start: 20151209
  8. PHENERGAN [Concomitant]
     Active Substance: PROMETHAZINE HYDROCHLORIDE
     Indication: PREMEDICATION
     Route: 042
     Dates: start: 20151210
  9. HYDROCORTISONE. [Concomitant]
     Active Substance: HYDROCORTISONE
     Indication: PREMEDICATION
     Route: 042
     Dates: start: 20151127

REACTIONS (6)
  - Hypotension [Unknown]
  - Panic attack [Recovering/Resolving]
  - Chest discomfort [Recovered/Resolved]
  - Dyspnoea [Recovered/Resolved]
  - Infusion related reaction [Recovering/Resolving]
  - Dizziness [Recovered/Resolved]

NARRATIVE: CASE EVENT DATE: 201511
